FAERS Safety Report 5944836-4 (Version None)
Quarter: 2008Q4

REPORT INFORMATION
  Report Type: 
  Country: None (occurrence: None)
  Receive Date: 20081107
  Receipt Date: 20081021
  Transmission Date: 20090506
  Serious: No
  Sender: FDA-Public Use
  Company Number: BR-AVENTIS-200820393GDDC

PATIENT
  Age: 29 Year
  Sex: Female

DRUGS (1)
  1. ARAVA [Suspect]
     Indication: ARTHRITIS
     Dosage: DOSE: UNK

REACTIONS (2)
  - DRUG EXPOSURE DURING PREGNANCY [None]
  - PREGNANCY [None]
